FAERS Safety Report 9014740 (Version 2)
Quarter: 2013Q1

REPORT INFORMATION
  Report Type: Report from Study
  Country: BE (occurrence: DE)
  Receive Date: 20130115
  Receipt Date: 20130127
  Transmission Date: 20140127
  Serious: Yes (Death)
  Sender: FDA-Public Use
  Company Number: BE-009507513-1301BEL004457

PATIENT
  Age: 69 Year
  Sex: Male

DRUGS (4)
  1. INVANZ [Suspect]
     Indication: PERITONITIS
     Dosage: 1 G, QD, OVER 30 MIN EVERY 24H FOR 5-14 DAYS
     Route: 042
     Dates: start: 20070116, end: 20070117
  2. PLACEBO (UNSPECIFIED) [Concomitant]
     Dosage: FOR 60 MIN, QD, FOR 5-14 DAYS
     Route: 042
  3. ELECTROLYTES (UNSPECIFIED) [Concomitant]
     Indication: FLUID REPLACEMENT
     Dosage: UNK
     Dates: start: 20070116, end: 20070116
  4. DEXTROSE [Concomitant]
     Indication: FLUID REPLACEMENT
     Dosage: UNK
     Dates: start: 20070116

REACTIONS (2)
  - Multi-organ failure [Fatal]
  - Cardiac arrest [Fatal]
